FAERS Safety Report 6301337-1 (Version None)
Quarter: 2009Q3

REPORT INFORMATION
  Report Type: 
  Country: None (occurrence: None)
  Receive Date: 20090807
  Receipt Date: 20090728
  Transmission Date: 20100115
  Serious: Yes (Other)
  Sender: FDA-Public Use
  Company Number: GB-PFIZER INC-2009246356

PATIENT
  Age: 82 Year

DRUGS (4)
  1. LINEZOLID [Suspect]
     Indication: ENTEROCOCCAL INFECTION
     Dosage: 600 MG, 2X/DAY
     Route: 048
     Dates: start: 20090601, end: 20090630
  2. RIFAMPICIN [Concomitant]
     Indication: ENTEROCOCCAL INFECTION
     Dosage: 300 MG, UNK
     Route: 048
     Dates: start: 20090401, end: 20090531
  3. MEROPENEM [Concomitant]
     Indication: ENTEROCOCCAL INFECTION
     Dosage: UNK
     Route: 042
     Dates: start: 20090401, end: 20090531
  4. PREDNISOLONE [Concomitant]
     Indication: MYALGIA
     Dosage: 15 MG, 1X/DAY

REACTIONS (1)
  - HAEMOLYTIC ANAEMIA [None]
